FAERS Safety Report 8976074 (Version 1)
Quarter: 2012Q4

REPORT INFORMATION
  Report Type: Report from Study
  Country: US (occurrence: US)
  Receive Date: 20121219
  Receipt Date: 20121219
  Transmission Date: 20130627
  Serious: Yes (Life-Threatening)
  Sender: FDA-Public Use
  Company Number: US-ROCHE-1171208

PATIENT
  Sex: Female

DRUGS (1)
  1. CAPECITABINE [Suspect]
     Indication: BREAST CANCER
     Dosage: 4 tabs
     Route: 065

REACTIONS (1)
  - Metastases to bone [Unknown]
